FAERS Safety Report 23495063 (Version 2)
Quarter: 2024Q1

REPORT INFORMATION
  Report Type: Spontaneous
  Country: US (occurrence: US)
  Receive Date: 20240207
  Receipt Date: 20240318
  Transmission Date: 20240410
  Serious: No
  Sender: FDA-Public Use
  Company Number: US-SANDOZ-SDZ2024US012091

PATIENT
  Sex: Female

DRUGS (1)
  1. METRONIDAZOLE [Suspect]
     Active Substance: METRONIDAZOLE
     Indication: Product used for unknown indication
     Dosage: 0.75 % 45G BID
     Route: 065

REACTIONS (4)
  - Product container issue [Unknown]
  - COVID-19 [Unknown]
  - Exposure via skin contact [Unknown]
  - Accidental exposure to product [Unknown]
